FAERS Safety Report 18923587 (Version 7)
Quarter: 2021Q3

REPORT INFORMATION
  Report Type: Spontaneous
  Country: US (occurrence: US)
  Receive Date: 20210222
  Receipt Date: 20210813
  Transmission Date: 20211014
  Serious: Yes (Hospitalization, Other)
  Sender: FDA-Public Use
  Company Number: US-GLOBAL BLOOD THERAPEUTICS INC-US-GBT-21-00497

PATIENT
  Age: 17 Year
  Sex: Female

DRUGS (3)
  1. HYDROXYUREA. [Concomitant]
     Active Substance: HYDROXYUREA
     Indication: PRODUCT USED FOR UNKNOWN INDICATION
     Dosage: NOT PROVIDED
     Dates: end: 2021
  2. OXBRYTA [Suspect]
     Active Substance: VOXELOTOR
     Route: 048
     Dates: start: 2021, end: 2021
  3. OXBRYTA [Suspect]
     Active Substance: VOXELOTOR
     Indication: SICKLE CELL DISEASE
     Route: 048
     Dates: start: 20210112

REACTIONS (13)
  - Sickle cell anaemia with crisis [Not Recovered/Not Resolved]
  - Facial paralysis [Unknown]
  - Sickle cell anaemia with crisis [Unknown]
  - Therapy cessation [Unknown]
  - Product dose omission issue [Unknown]
  - Fatigue [Not Recovered/Not Resolved]
  - Sickle cell anaemia with crisis [Not Recovered/Not Resolved]
  - Disturbance in attention [Not Recovered/Not Resolved]
  - Cerebrovascular accident [Unknown]
  - Infectious mononucleosis [Unknown]
  - Product use complaint [Unknown]
  - Intentional product misuse [Unknown]
  - Product storage error [Unknown]

NARRATIVE: CASE EVENT DATE: 2021
